FAERS Safety Report 4332609-8 (Version None)
Quarter: 2004Q1

REPORT INFORMATION
  Report Type: 
  Country: None (occurrence: None)
  Receive Date: 20040330
  Receipt Date: 20040315
  Transmission Date: 20041129
  Serious: Yes (Hospitalization)
  Sender: FDA-Public Use
  Company Number: A01200401247

PATIENT
  Age: 82 Year
  Sex: Female

DRUGS (5)
  1. PLAVIX [Suspect]
     Dosage: 75 MG QD
     Route: 048
     Dates: end: 20040101
  2. CORDARONE [Concomitant]
  3. ALDALIX (FUROSEMIDE + SPIRONOLACTONE) [Concomitant]
  4. RAMIPRIL [Concomitant]
  5. LEVOTONINE (OXITRIPTAN) [Concomitant]

REACTIONS (2)
  - POLYARTERITIS NODOSA [None]
  - RENAL FAILURE [None]
